FAERS Safety Report 5860534-X (Version None)
Quarter: 2008Q3

REPORT INFORMATION
  Report Type: 
  Country: None (occurrence: None)
  Receive Date: 20080827
  Receipt Date: 20070830
  Transmission Date: 20090109
  Serious: No
  Sender: FDA-Public Use
  Company Number: US-ABBOTT-07P-163-0415801-00

PATIENT
  Sex: Female
  Weight: 74.91 kg

DRUGS (5)
  1. COATED PDS [Suspect]
     Indication: BLOOD CHOLESTEROL INCREASED
     Dosage: WHITE TABS
     Route: 048
     Dates: start: 20070501, end: 20070827
  2. COATED PDS [Suspect]
     Dosage: ORANGE TABS
     Route: 048
     Dates: start: 20070828, end: 20070829
  3. LISINOPRIL [Concomitant]
     Indication: HYPERTENSION
  4. RANITIDINE HYDROCHLORIDE [Concomitant]
     Indication: STOMACH DISCOMFORT
  5. LORAZEPAM [Concomitant]
     Indication: INSOMNIA

REACTIONS (2)
  - FLUSHING [None]
  - PALPITATIONS [None]
